FAERS Safety Report 12628753 (Version 1)
Quarter: 2016Q3

REPORT INFORMATION
  Report Type: Report from Study
  Country: ID (occurrence: ID)
  Receive Date: 20160808
  Receipt Date: 20160808
  Transmission Date: 20161109
  Serious: Yes (Hospitalization)
  Sender: FDA-Public Use
  Company Number: ID-ROCHE-1761434

PATIENT
  Age: 73 Year
  Sex: Female

DRUGS (1)
  1. HERCEPTIN [Suspect]
     Active Substance: TRASTUZUMAB
     Indication: BREAST CANCER
     Route: 065
     Dates: start: 20160503

REACTIONS (8)
  - General physical health deterioration [Recovered/Resolved]
  - Electrolyte imbalance [Recovered/Resolved]
  - Asthenia [Recovered/Resolved]
  - Oedema peripheral [Recovering/Resolving]
  - Liver function test abnormal [Recovered/Resolved]
  - Diarrhoea [Recovered/Resolved]
  - Drug ineffective [Unknown]
  - Back pain [Recovered/Resolved]
